FAERS Safety Report 16729703 (Version 2)
Quarter: 2019Q3

REPORT INFORMATION
  Report Type: Report from Study
  Country: US (occurrence: US)
  Receive Date: 20190822
  Receipt Date: 20190827
  Transmission Date: 20191005
  Serious: Yes (Other)
  Sender: FDA-Public Use
  Company Number: US-BAYER-2019-081054

PATIENT
  Age: 59 Year
  Sex: Female

DRUGS (3)
  1. VITRAKVI [Suspect]
     Active Substance: LAROTRECTINIB
     Indication: LUNG CANCER METASTATIC
     Dosage: 100 MG, BID
  2. VITRAKVI [Suspect]
     Active Substance: LAROTRECTINIB
     Indication: LUNG CANCER METASTATIC
     Dosage: 75 MG, BID
     Dates: start: 20190326, end: 20190416
  3. VITRAKVI [Suspect]
     Active Substance: LAROTRECTINIB
     Indication: LUNG CANCER METASTATIC
     Dosage: 50 MG, TID
     Dates: start: 20190417

REACTIONS (15)
  - Muscle spasms [Recovering/Resolving]
  - Arthralgia [Recovering/Resolving]
  - Eyelid function disorder [Recovered/Resolved]
  - Abdominal pain upper [None]
  - Neuropathy peripheral [None]
  - Peripheral swelling [Recovering/Resolving]
  - Muscular weakness [Recovering/Resolving]
  - Chest discomfort [Recovered/Resolved]
  - Joint swelling [Recovering/Resolving]
  - Hypoaesthesia [Recovered/Resolved]
  - Limb discomfort [Recovered/Resolved]
  - Skin fissures [Recovering/Resolving]
  - Onychomadesis [Recovering/Resolving]
  - Gait disturbance [Recovering/Resolving]
  - Paraesthesia [Recovered/Resolved]

NARRATIVE: CASE EVENT DATE: 20190417
